FAERS Safety Report 8414700-X (Version None)
Quarter: 2012Q2

REPORT INFORMATION
  Report Type: 
  Country: None (occurrence: None)
  Receive Date: 20120605
  Receipt Date: 20120530
  Transmission Date: 20120825
  Serious: Yes (Hospitalization, Disabling)
  Sender: FDA-Public Use
  Company Number: US-MERCK-1103USA00842

PATIENT
  Age: 46 Year
  Sex: Female
  Weight: 69 kg

DRUGS (13)
  1. ZOVIRAX [Concomitant]
     Indication: HERPES VIRUS INFECTION
     Route: 048
     Dates: start: 20000101, end: 20070801
  2. CALCIUM (UNSPECIFIED) [Concomitant]
     Indication: OSTEOPOROSIS
     Dosage: CALC 1600 MG W/ 400 IU VIT D
     Route: 065
  3. FLONASE [Concomitant]
     Indication: RHINITIS ALLERGIC
     Route: 065
  4. FOSAMAX [Suspect]
     Indication: OSTEOPOROSIS
     Route: 048
     Dates: start: 20001001
  5. SENNA [Concomitant]
     Indication: IRRITABLE BOWEL SYNDROME
     Route: 065
  6. FOSAMAX [Suspect]
     Indication: OSTEOPENIA
     Route: 048
     Dates: start: 20001001
  7. FOSAMAX [Suspect]
     Route: 048
     Dates: start: 20010201
  8. PAXIL [Concomitant]
     Indication: DEPRESSION
     Route: 048
  9. CALCIUM (UNSPECIFIED) [Concomitant]
     Indication: OSTEOPENIA
     Dosage: CALC 1600 MG W/ 400 IU VIT D
     Route: 065
  10. VITAMIN D (UNSPECIFIED) [Concomitant]
     Route: 065
  11. FOSAMAX [Suspect]
     Route: 048
     Dates: start: 20010201
  12. ALENDRONATE SODIUM [Suspect]
     Indication: OSTEOPOROSIS
     Route: 048
     Dates: start: 20080101, end: 20091201
  13. BENTYL [Concomitant]
     Indication: IRRITABLE BOWEL SYNDROME
     Route: 048

REACTIONS (48)
  - FEMUR FRACTURE [None]
  - LOW TURNOVER OSTEOPATHY [None]
  - ADVERSE EVENT [None]
  - BREAST MASS [None]
  - MIGRAINE [None]
  - INTERVERTEBRAL DISC DEGENERATION [None]
  - AVULSION FRACTURE [None]
  - CELLULITIS [None]
  - LACTOSE INTOLERANCE [None]
  - VAGINAL DISORDER [None]
  - STRESS FRACTURE [None]
  - BREAST CALCIFICATIONS [None]
  - ENDOMETRIAL HYPERPLASIA [None]
  - HERPES ZOSTER [None]
  - EXCORIATION [None]
  - BLOOD PRESSURE INCREASED [None]
  - MUSCULOSKELETAL CHEST PAIN [None]
  - CONTUSION [None]
  - DIVERTICULUM [None]
  - NASAL POLYPS [None]
  - KERATOACANTHOMA [None]
  - VITAMIN D DEFICIENCY [None]
  - MYALGIA [None]
  - PATELLA FRACTURE [None]
  - PAROTITIS [None]
  - SPINAL PAIN [None]
  - GALLOP RHYTHM PRESENT [None]
  - EPISTAXIS [None]
  - OTITIS MEDIA [None]
  - MELANOCYTIC NAEVUS [None]
  - FOOT FRACTURE [None]
  - HEART SOUNDS ABNORMAL [None]
  - BONE DENSITY DECREASED [None]
  - DRUG INEFFECTIVE [None]
  - OSTEOARTHRITIS [None]
  - OEDEMA [None]
  - LACERATION [None]
  - SINUSITIS [None]
  - ANXIETY [None]
  - CONSTIPATION [None]
  - COSTOCHONDRITIS [None]
  - HYPERSENSITIVITY [None]
  - SCOLIOSIS [None]
  - PYOGENIC GRANULOMA [None]
  - FOOT DEFORMITY [None]
  - FALL [None]
  - VAGINITIS BACTERIAL [None]
  - URINARY TRACT INFECTION [None]
